FAERS Safety Report 10057795 (Version 2)
Quarter: 2014Q2

REPORT INFORMATION
  Report Type: Report from Study
  Country: DE (occurrence: DE)
  Receive Date: 20140404
  Receipt Date: 20140627
  Transmission Date: 20141212
  Serious: Yes (Hospitalization)
  Sender: FDA-Public Use
  Company Number: DE-ROCHE-1376438

PATIENT
  Sex: Female

DRUGS (18)
  1. RITUXIMAB [Suspect]
     Indication: B-CELL LYMPHOMA
     Dosage: DAY 4,-1,1,4 FOR 8 DAY (S)
     Route: 042
     Dates: start: 20140228, end: 20140307
  2. PEGFILGRASTIM [Suspect]
     Indication: B-CELL LYMPHOMA
     Dosage: REGIMEN #1?1 TIME IN 14 DAYS FOR 1 DAY
     Route: 058
     Dates: start: 20140311, end: 20140311
  3. CYCLOPHOSPHAMIDE [Suspect]
     Indication: B-CELL LYMPHOMA
     Dosage: REGIMEN #1?1 TIME IN 14 DAYS FOR 1 DAY
     Route: 042
     Dates: start: 20140305, end: 20140305
  4. DOXORUBICIN [Suspect]
     Indication: B-CELL LYMPHOMA
     Dosage: REGIMEN #1?1 TIME IN 14 DAYS FOR 1 DAY
     Route: 042
     Dates: start: 20140305, end: 20140305
  5. LIPOSOMAL VINCRISTINE [Suspect]
     Indication: B-CELL LYMPHOMA
     Dosage: 1 TIME IN 14 DAYS FOR 1 DAY
     Route: 042
     Dates: start: 20140305, end: 20140305
  6. PREDNISONE [Suspect]
     Indication: B-CELL LYMPHOMA
     Dosage: 1 TIME IN 14 DAYS FOR 1 DAY
     Route: 048
     Dates: start: 20140305, end: 20140309
  7. SULFAMETHOXAZOLE/TRIMETHOPRIM [Concomitant]
     Dosage: MONDAY, WEDNESDAY AND FRIDAY
     Route: 048
     Dates: start: 20140312
  8. IBANDRONIC ACID [Concomitant]
     Route: 048
     Dates: start: 20140312
  9. ALLOPURINOL [Concomitant]
     Route: 048
     Dates: start: 20140312
  10. VALSARTAN [Concomitant]
     Indication: HYPERTENSION
     Route: 048
     Dates: start: 20140312
  11. HYDROCHLOROTHIAZIDE [Concomitant]
     Route: 048
     Dates: start: 20140312
  12. PANTOPRAZOL [Concomitant]
     Indication: GASTROOESOPHAGEAL REFLUX DISEASE
     Route: 048
     Dates: start: 20140312
  13. COLECALCIFEROL [Concomitant]
     Indication: VITAMIN SUPPLEMENTATION
     Route: 048
     Dates: start: 20140312
  14. METAMIZOLE SODIUM [Concomitant]
     Indication: PAIN
     Route: 048
     Dates: start: 20140312
  15. CIPROFLOXACIN [Concomitant]
     Route: 048
     Dates: start: 20140312
  16. AMPHOTERICIN B [Concomitant]
     Dosage: 4X1/4 BOTTLE, DAILY
     Route: 048
     Dates: start: 20140312
  17. ONDANSETRON [Concomitant]
     Indication: NAUSEA
     Route: 048
     Dates: start: 20140312
  18. KALIUM (POTASSIUM CHLORIDE) [Concomitant]
     Indication: BLOOD POTASSIUM DECREASED
     Route: 048
     Dates: start: 20140312

REACTIONS (4)
  - Hypertension [Recovered/Resolved]
  - Hyponatraemia [Recovered/Resolved]
  - Vomiting [Recovered/Resolved]
  - Nausea [Recovered/Resolved]
